FAERS Safety Report 5214893-1 (Version None)
Quarter: 2007Q1

REPORT INFORMATION
  Report Type: 
  Country: None (occurrence: None)
  Receive Date: 20070122
  Receipt Date: 20070122
  Transmission Date: 20070707
  Serious: No
  Sender: FDA-Public Use
  Company Number: None

PATIENT
  Sex: Female

DRUGS (1)
  1. COLGATE [Suspect]
     Dosage: LAST 5 MONTHS

REACTIONS (1)
  - ORAL SOFT TISSUE DISORDER [None]
